FAERS Safety Report 12289845 (Version 1)
Quarter: 2016Q2

REPORT INFORMATION
  Report Type: Spontaneous
  Country: US (occurrence: None)
  Receive Date: 20160420
  Receipt Date: 20160420
  Transmission Date: 20160815
  Serious: Yes (Other)
  Sender: FDA-Public Use
  Company Number: None

PATIENT
  Age: 61 Year
  Sex: Female
  Weight: 54.43 kg

DRUGS (4)
  1. ALLEGRA [Concomitant]
     Active Substance: FEXOFENADINE HYDROCHLORIDE
  2. FENOFIBRIC [Concomitant]
  3. LEVOFLOXACIN, 500 MG DR. REDDYS LAB [Suspect]
     Active Substance: LEVOFLOXACIN
     Indication: SINUSITIS
     Dosage: 10 TABLETS IN THE MORNING TAKEN BY MOUTH
     Route: 048
     Dates: start: 20160405, end: 20160415
  4. ASPIRIN. [Concomitant]
     Active Substance: ASPIRIN

REACTIONS (7)
  - Movement disorder [None]
  - Myalgia [None]
  - Nausea [None]
  - Diarrhoea [None]
  - Irritability [None]
  - Chest pain [None]
  - Impaired work ability [None]

NARRATIVE: CASE EVENT DATE: 20160409
